FAERS Safety Report 8371429-4 (Version None)
Quarter: 2012Q2

REPORT INFORMATION
  Report Type: 
  Country: None (occurrence: None)
  Receive Date: 20120518
  Receipt Date: 20120514
  Transmission Date: 20120825
  Serious: Yes (Other)
  Sender: FDA-Public Use
  Company Number: HU-PFIZER INC-2012118778

PATIENT
  Sex: Female

DRUGS (4)
  1. BETAREVIN [Concomitant]
     Dosage: UNK
  2. XANAX [Suspect]
     Dosage: UNK
  3. NOOTROPIL [Concomitant]
     Dosage: UNK
  4. MAGNE-B6 [Concomitant]
     Dosage: UNK

REACTIONS (2)
  - DIZZINESS [None]
  - PANIC ATTACK [None]
